FAERS Safety Report 26079219 (Version 1)
Quarter: 2025Q4

REPORT INFORMATION
  Report Type: Spontaneous
  Country: US (occurrence: US)
  Receive Date: 20251123
  Receipt Date: 20251123
  Transmission Date: 20260118
  Serious: No
  Sender: GALPHARM INTERNATIONAL
  Company Number: US-PERRIGO-25US008300

PATIENT
  Sex: Female

DRUGS (1)
  1. OPILL [Suspect]
     Active Substance: NORGESTREL
     Indication: Product used for unknown indication
     Dosage: UNKNOWN, UNKNOWN
     Route: 048

REACTIONS (6)
  - Tachycardia [Unknown]
  - Crying [Unknown]
  - Insomnia [Unknown]
  - Anxiety [Unknown]
  - Menstruation irregular [Unknown]
  - Intermenstrual bleeding [Unknown]
